FAERS Safety Report 4599569-6 (Version None)
Quarter: 2005Q1

REPORT INFORMATION
  Report Type: 
  Country: None (occurrence: None)
  Receive Date: 20050303
  Receipt Date: 20050217
  Transmission Date: 20050727
  Serious: Yes (Hospitalization)
  Sender: FDA-Public Use
  Company Number: US-2005-002373

PATIENT
  Age: 57 Year
  Sex: Female

DRUGS (3)
  1. BETASERON [Suspect]
     Indication: MULTIPLE SCLEROSIS
     Dosage: EVERY 2D, SUBCUTANEOUS; SEE IMAGE
     Route: 058
     Dates: start: 20030601, end: 20050103
  2. BETASERON [Suspect]
     Indication: MULTIPLE SCLEROSIS
     Dosage: EVERY 2D, SUBCUTANEOUS; SEE IMAGE
     Route: 058
     Dates: start: 20050128
  3. COPAXONE [Suspect]
     Dates: start: 20050101, end: 20050101

REACTIONS (7)
  - COMA [None]
  - COORDINATION ABNORMAL [None]
  - DEPRESSION [None]
  - DYSARTHRIA [None]
  - FACTITIOUS DISORDER [None]
  - PNEUMONIA [None]
  - SENSORY DISTURBANCE [None]
